FAERS Safety Report 5501425-3 (Version None)
Quarter: 2007Q4

REPORT INFORMATION
  Report Type: 
  Country: None (occurrence: None)
  Receive Date: 20071026
  Receipt Date: 20071026
  Transmission Date: 20080405
  Serious: No
  Sender: FDA-Public Use
  Company Number: None

PATIENT
  Age: 10 Year
  Sex: Male
  Weight: 81.2 kg

DRUGS (1)
  1. VANCOMYCIN [Suspect]
     Indication: CELLULITIS
     Dosage: 500MG INFUSION IV
     Route: 042
     Dates: start: 20070712

REACTIONS (2)
  - INFUSION RELATED REACTION [None]
  - URTICARIA [None]
